FAERS Safety Report 7635031-1 (Version None)
Quarter: 2011Q3

REPORT INFORMATION
  Report Type: 
  Country: None (occurrence: None)
  Receive Date: 20110726
  Receipt Date: 20110105
  Transmission Date: 20111222
  Serious: Yes (Hospitalization)
  Sender: FDA-Public Use
  Company Number: US-UCBSA-024879

PATIENT
  Sex: Male

DRUGS (6)
  1. LASIX [Concomitant]
  2. CIMZIA [Suspect]
     Indication: CROHN'S DISEASE
     Route: 058
     Dates: start: 20090605
  3. SPIRONOLACTONE [Concomitant]
  4. ASPIRIN [Concomitant]
  5. LIPITOR [Concomitant]
  6. COREG [Concomitant]

REACTIONS (1)
  - PNEUMONIA [None]
